FAERS Safety Report 8532482-8 (Version None)
Quarter: 2012Q3

REPORT INFORMATION
  Report Type: 
  Country: None (occurrence: None)
  Receive Date: 20120716
  Receipt Date: 20120716
  Transmission Date: 20120928
  Serious: Yes (Other)
  Sender: FDA-Public Use
  Company Number: None

PATIENT
  Age: 19 Year
  Sex: Female
  Weight: 68.0396 kg

DRUGS (1)
  1. CLOTRIMAZOLE [Suspect]
     Indication: TINEA PEDIS
     Dosage: SMALL AMOUNT APPLIED TO FEET ONCE/DAY TOP 3 OF 4 DAYS
     Route: 061
     Dates: start: 20120708, end: 20120711

REACTIONS (5)
  - LYMPHADENOPATHY [None]
  - OEDEMA PERIPHERAL [None]
  - URTICARIA [None]
  - SWELLING [None]
  - HYPERSENSITIVITY [None]
